FAERS Safety Report 15932834 (Version 1)
Quarter: 2019Q1

REPORT INFORMATION
  Report Type: Spontaneous
  Country: JP (occurrence: JP)
  Receive Date: 20190207
  Receipt Date: 20190207
  Transmission Date: 20190417
  Serious: Yes (Life-Threatening, Hospitalization, Other)
  Sender: FDA-Public Use
  Company Number: JP-IMPAX LABORATORIES, LLC-2019-IPXL-00412

PATIENT
  Age: 27 Year
  Sex: Male

DRUGS (4)
  1. HYDROCORTISONE. [Suspect]
     Active Substance: HYDROCORTISONE
     Indication: HYPOPITUITARISM
  2. CABERGOLINE. [Suspect]
     Active Substance: CABERGOLINE
     Indication: HYPOPITUITARISM
     Dosage: UNK,AFTER 4 WEEKS
     Route: 065
  3. HYDROCORTISONE. [Suspect]
     Active Substance: HYDROCORTISONE
     Indication: PROLACTIN-PRODUCING PITUITARY TUMOUR
     Dosage: UNK, DAILY
     Route: 048
  4. CABERGOLINE. [Suspect]
     Active Substance: CABERGOLINE
     Indication: PROLACTIN-PRODUCING PITUITARY TUMOUR
     Dosage: 0.25 MILLIGRAM, 1 /WEEK
     Route: 065

REACTIONS (1)
  - Status epilepticus [Recovered/Resolved]
